FAERS Safety Report 5146778-3 (Version None)
Quarter: 2006Q4

REPORT INFORMATION
  Report Type: 
  Country: None (occurrence: None)
  Receive Date: 20061109
  Receipt Date: 20061029
  Transmission Date: 20070319
  Serious: Yes (Hospitalization)
  Sender: FDA-Public Use
  Company Number: GB-JNJFOC-20061006828

PATIENT
  Sex: Female

DRUGS (3)
  1. RISPERDAL [Suspect]
     Indication: BIPOLAR DISORDER
     Route: 048
  2. GEODON [Suspect]
     Indication: BIPOLAR DISORDER
  3. ZYPREXA [Suspect]
     Indication: BIPOLAR DISORDER

REACTIONS (8)
  - DRUG EXPOSURE DURING PREGNANCY [None]
  - INFECTION [None]
  - NEUROLEPTIC MALIGNANT SYNDROME [None]
  - PNEUMONIA [None]
  - PULMONARY EMBOLISM [None]
  - RESPIRATORY FAILURE [None]
  - THROMBOSIS [None]
  - URINARY BLADDER HAEMORRHAGE [None]
